FAERS Safety Report 5781587-3 (Version None)
Quarter: 2008Q2

REPORT INFORMATION
  Report Type: 
  Country: None (occurrence: None)
  Receive Date: 20080623
  Receipt Date: 20080613
  Transmission Date: 20081010
  Serious: Yes (Other)
  Sender: FDA-Public Use
  Company Number: US-JNJFOC-20080406430

PATIENT
  Age: 71 Year
  Sex: Female

DRUGS (13)
  1. FENTANYL TRANSDERMAL SYSTEM [Suspect]
     Route: 062
  2. FENTANYL TRANSDERMAL SYSTEM [Suspect]
     Route: 062
  3. FENTANYL TRANSDERMAL SYSTEM [Suspect]
     Route: 062
  4. FENTANYL TRANSDERMAL SYSTEM [Suspect]
     Route: 062
  5. FENTANYL TRANSDERMAL SYSTEM [Suspect]
     Route: 062
  6. FENTANYL TRANSDERMAL SYSTEM [Suspect]
     Indication: PAIN
     Route: 062
  7. DURAGESIC-100 [Suspect]
     Indication: PAIN
     Route: 062
  8. ALTACE [Concomitant]
  9. REQUIP [Concomitant]
     Indication: RESTLESS LEGS SYNDROME
  10. IBUROFEN [Concomitant]
     Indication: PAIN
     Dosage: 2-3 TIMES
  11. CELEBREX [Concomitant]
     Indication: PAIN
  12. LIPITOR [Concomitant]
     Indication: HYPERCHOLESTEROLAEMIA
  13. VERAPAMIL [Concomitant]
     Indication: HYPERTENSION

REACTIONS (12)
  - APPLICATION SITE ERYTHEMA [None]
  - APPLICATION SITE PAIN [None]
  - APPLICATION SITE PRURITUS [None]
  - APPLICATION SITE RASH [None]
  - BACK INJURY [None]
  - DRUG INEFFECTIVE [None]
  - FALL [None]
  - FIBROMYALGIA [None]
  - INTERVERTEBRAL DISC DEGENERATION [None]
  - PAIN [None]
  - PRURITUS GENERALISED [None]
  - WRONG TECHNIQUE IN DRUG USAGE PROCESS [None]
